FAERS Safety Report 6381237-1 (Version None)
Quarter: 2009Q3

REPORT INFORMATION
  Report Type: 
  Country: None (occurrence: None)
  Receive Date: 20090929
  Receipt Date: 20080530
  Transmission Date: 20100115
  Serious: Yes (Death, Hospitalization)
  Sender: FDA-Public Use
  Company Number: FR-PFIZER INC-2009248505

PATIENT
  Age: 54 Year

DRUGS (24)
  1. IRINOTECAN HCL [Suspect]
     Indication: GASTRIC CANCER
     Dosage: 1200 MG, CYCLIC (4 CURES)
     Dates: start: 20071030
  2. IRINOTECAN HCL [Suspect]
     Dosage: 300 MG, CYCLIC (1 CURE)
     Dates: start: 20071227, end: 20080117
  3. EPIRUBICIN HCL [Suspect]
     Indication: GASTRIC CANCER
     Dosage: 255 MG, CYCLIC (3 CURES)
     Dates: start: 20070625
  4. EPIRUBICIN HCL [Suspect]
     Dosage: 170 MG, CYCLIC (2 CURES)
     Dates: start: 20070917, end: 20071022
  5. CISPLATIN [Suspect]
     Indication: GASTRIC CANCER
     Dosage: 300 MG, CYCLIC (3 CURES)
     Dates: start: 20070625
  6. CISPLATIN [Suspect]
     Dosage: 200 MG, CYCLIC (2 CURES)
     Dates: start: 20070917, end: 20071022
  7. FLUOROURACIL [Suspect]
     Indication: GASTRIC CANCER
     Dosage: 16000 MG, CYCLIC (4 CURES)
     Route: 041
     Dates: start: 20071030
  8. FLUOROURACIL [Suspect]
     Dosage: 2720 MG, CYCLIC (4 CURES)
     Route: 040
     Dates: start: 20071030
  9. FLUOROURACIL [Suspect]
     Dosage: 4000 MG, CYCLIC (1 CURE)
     Route: 041
     Dates: start: 20071027, end: 20080117
  10. FLUOROURACIL [Suspect]
     Dosage: 680 MG, CYCLIC; 1 CURE
     Route: 040
     Dates: start: 20071027, end: 20080117
  11. CAPECITABINE [Suspect]
     Indication: GASTRIC CANCER
     Dosage: 145500 MG, CYCLIC (3 CURES)
     Dates: start: 20070625
  12. CAPECITABINE [Suspect]
     Dosage: 98000 MG, CYCLIC (2 CURES)
     Dates: start: 20070917, end: 20071022
  13. FOLINIC ACID [Suspect]
     Indication: GASTRIC CANCER
     Dosage: 2720 MG, CYCLIC; (4 CURES)
     Dates: start: 20071030
  14. FOLINIC ACID [Suspect]
     Dosage: 680 MG, CYCLIC (1 CURE)
     Dates: start: 20071227, end: 20080117
  15. OXYNORM [Concomitant]
  16. HYPNOVEL [Concomitant]
  17. TRANXENE [Concomitant]
  18. LANTUS [Concomitant]
     Indication: TYPE 1 DIABETES MELLITUS
     Dosage: EVENING INTAKE
     Route: 042
     Dates: start: 19950101
  19. MORPHINE [Concomitant]
     Indication: PAIN
     Dosage: UNK
     Route: 042
     Dates: start: 20070101
  20. ATARAX [Concomitant]
     Indication: PAIN
     Dosage: 1 TABLET
     Route: 048
     Dates: start: 20070101
  21. SKENAN [Concomitant]
     Indication: PAIN
     Dosage: 2 TABLETS
     Route: 048
     Dates: start: 20070101
  22. ACTISKENAN [Concomitant]
     Indication: PAIN
     Dosage: UNK
     Route: 048
     Dates: start: 20070101
  23. RIVOTRIL [Concomitant]
     Indication: PAIN
     Dosage: 2 DROPS
     Route: 048
     Dates: start: 20070101
  24. XANAX [Concomitant]
     Indication: PAIN
     Dosage: 1 DF, UNK
     Route: 048
     Dates: start: 20070101

REACTIONS (1)
  - GENERAL PHYSICAL HEALTH DETERIORATION [None]
